FAERS Safety Report 19990313 (Version 1)
Quarter: 2021Q4

REPORT INFORMATION
  Report Type: Spontaneous
  Country: US (occurrence: US)
  Receive Date: 20211021
  Receipt Date: 20211021
  Transmission Date: 20220303
  Serious: Yes (Hospitalization)
  Sender: FDA-Public Use
  Company Number: None

PATIENT
  Sex: Male

DRUGS (3)
  1. PULMOZYME [Suspect]
     Active Substance: DORNASE ALFA
     Dosage: ?          OTHER DOSE:2.5MG/2.5ML;
     Route: 055
  2. LANTUS SOLOS INJ [Concomitant]
     Dosage: DOSE: 2.5MG/2.5ML
  3. NORDIROPIN FLEXPRO [Concomitant]

REACTIONS (1)
  - Cystic fibrosis [None]
